FAERS Safety Report 7316019-7 (Version None)
Quarter: 2011Q1

REPORT INFORMATION
  Report Type: 
  Country: None (occurrence: None)
  Receive Date: 20110225
  Receipt Date: 20110217
  Transmission Date: 20110831
  Serious: Yes (Other)
  Sender: FDA-Public Use
  Company Number: PHHY2010JP73553

PATIENT
  Age: 35 Year
  Sex: Male

DRUGS (7)
  1. AZULFIDINE [Concomitant]
  2. PREDNISOLONE [Concomitant]
     Dosage: 30 MG DAILY
     Dates: start: 20091001
  3. VOLTAREN [Suspect]
     Indication: ARTHRALGIA
     Route: 048
  4. VOLTAREN [Suspect]
     Indication: OEDEMA PERIPHERAL
  5. PREDNISOLONE [Concomitant]
     Dosage: 45 MG DAILY
  6. DEXAMETHASONE [Concomitant]
     Indication: ARTHRALGIA
  7. DEXAMETHASONE [Concomitant]
     Indication: OEDEMA PERIPHERAL

REACTIONS (10)
  - TONGUE GEOGRAPHIC [None]
  - ARTERITIS [None]
  - RASH PUSTULAR [None]
  - ARTHRALGIA [None]
  - ERYTHEMA [None]
  - OSTEONECROSIS [None]
  - PUSTULAR PSORIASIS [None]
  - RASH [None]
  - RED BLOOD CELL SEDIMENTATION RATE INCREASED [None]
  - KERATITIS [None]
